FAERS Safety Report 10237721 (Version 1)
Quarter: 2014Q2

REPORT INFORMATION
  Report Type: Spontaneous
  Country: IE (occurrence: None)
  Receive Date: 20140613
  Receipt Date: 20140613
  Transmission Date: 20141212
  Serious: No
  Sender: FDA-Public Use
  Company Number: None

PATIENT
  Age: 29 Year
  Sex: Male

DRUGS (1)
  1. BOOTS SOLTAN INVISIBLE PUMP SPRAY FACTOR (SPF30) [Suspect]
     Indication: PROPHYLAXIS

REACTIONS (3)
  - Rash generalised [None]
  - Sunburn [None]
  - Blister [None]
